FAERS Safety Report 11817227 (Version 3)
Quarter: 2024Q4

REPORT INFORMATION
  Report Type: Spontaneous
  Country: US (occurrence: US)
  Receive Date: 20151210
  Receipt Date: 20241105
  Transmission Date: 20250114
  Serious: No
  Sender: JOHNSON AND JOHNSON
  Company Number: US-JNJFOC-20151115319

PATIENT
  Sex: Male

DRUGS (8)
  1. RISPERDAL [Suspect]
     Active Substance: RISPERIDONE
     Indication: Attention deficit hyperactivity disorder
     Dosage: VARYING DOSES OF 0.5 MG HALF IN MORNING AND ONE AT BEDTIME AND 1 MG TWICE DAILY
     Route: 048
     Dates: start: 20090508
  2. RISPERDAL [Suspect]
     Active Substance: RISPERIDONE
     Indication: Oppositional defiant disorder
     Dosage: 0.25MG, 1MG, 2MG OF RISPERDONE 1 IN THE MORNING AND 1 AFTER SCHOOL
     Route: 048
     Dates: start: 20100606
  3. RISPERDAL [Suspect]
     Active Substance: RISPERIDONE
     Indication: Autism spectrum disorder
     Route: 048
     Dates: start: 20131106, end: 20140122
  4. RISPERDAL [Suspect]
     Active Substance: RISPERIDONE
     Indication: Mood swings
  5. RISPERDAL [Suspect]
     Active Substance: RISPERIDONE
     Indication: Aggression
  6. RISPERDAL [Suspect]
     Active Substance: RISPERIDONE
     Indication: Appetite disorder
  7. RISPERDAL [Suspect]
     Active Substance: RISPERIDONE
     Indication: Sleep disorder
  8. INVEGA [Suspect]
     Active Substance: PALIPERIDONE
     Indication: Product used for unknown indication
     Route: 048

REACTIONS (2)
  - Weight increased [Unknown]
  - Gynaecomastia [Unknown]

NARRATIVE: CASE EVENT DATE: 20130101
